FAERS Safety Report 19138923 (Version 1)
Quarter: 2021Q2

REPORT INFORMATION
  Report Type: Spontaneous
  Country: JP (occurrence: JP)
  Receive Date: 20210415
  Receipt Date: 20210415
  Transmission Date: 20210717
  Serious: Yes (Hospitalization)
  Sender: FDA-Public Use
  Company Number: JP-ORGANON-O2104JPN000954

PATIENT
  Age: 54 Year
  Sex: Male

DRUGS (9)
  1. LUNESTA [Concomitant]
     Active Substance: ESZOPICLONE
     Dosage: 1 MG/DAY
     Route: 065
  2. LONASEN [Concomitant]
     Active Substance: BLONANSERIN
     Dosage: 4 MG/DAY
     Route: 065
  3. EFIENT [Concomitant]
     Active Substance: PRASUGREL HYDROCHLORIDE
     Dosage: 3.75 MG/DAY
     Route: 065
  4. MIYA?BM [Concomitant]
     Active Substance: CLOSTRIDIUM BUTYRICUM SPORES STRAIN M-55
     Dosage: 1 DF/8 HOURS
     Route: 048
  5. MUCOSTA [Concomitant]
     Active Substance: REBAMIPIDE
     Dosage: 100 MG/8 HOURS
     Route: 065
  6. TAKELDA [Concomitant]
     Active Substance: ASPIRIN\LANSOPRAZOLE
     Dosage: 1 DF/DAY
     Route: 048
  7. METHYCOBAL [Concomitant]
     Active Substance: METHYLCOBALAMIN
     Dosage: 500 MICROGRAM/8 HOURS
     Route: 065
  8. EZETIMIBE. [Suspect]
     Active Substance: EZETIMIBE
     Indication: DYSLIPIDAEMIA
     Dosage: 10 MG/DAY
     Route: 048
     Dates: start: 20201006
  9. LIVALO [Concomitant]
     Active Substance: PITAVASTATIN CALCIUM
     Dosage: 2 MG/DAY
     Route: 048

REACTIONS (1)
  - Nephrotic syndrome [Not Recovered/Not Resolved]

NARRATIVE: CASE EVENT DATE: 202101
